FAERS Safety Report 5266908-2 (Version None)
Quarter: 2007Q1

REPORT INFORMATION
  Report Type: 
  Country: None (occurrence: None)
  Receive Date: 20070316
  Receipt Date: 20070305
  Transmission Date: 20070707
  Serious: Yes (Hospitalization)
  Sender: FDA-Public Use
  Company Number: LB-NOVOPROD-261325

PATIENT
  Age: 1 Month
  Sex: Female

DRUGS (5)
  1. NOVOSEVEN [Suspect]
     Indication: HAEMORRHAGE INTRACRANIAL
     Dosage: 60 UG/KG, SINGLE
  2. NOVOSEVEN [Suspect]
     Dosage: 30 UG/KG/EVERY 4-6 HRS FOR 10 DAYS
  3. NOVOSEVEN [Suspect]
     Dosage: 30 UG/KG/FOR 5 DAYS
     Route: 042
  4. NOVOSEVEN [Suspect]
     Dosage: 30 UG/KG, QID
  5. NOVOSEVEN [Suspect]
     Dosage: 30 UG/KG/WEEKLY

REACTIONS (2)
  - HYDROCEPHALUS [None]
  - SUBARACHNOID HAEMORRHAGE [None]
